FAERS Safety Report 23525435 (Version 1)
Quarter: 2024Q1

REPORT INFORMATION
  Report Type: Spontaneous
  Country: US (occurrence: US)
  Receive Date: 20240215
  Receipt Date: 20240215
  Transmission Date: 20240410
  Serious: Yes (Hospitalization, Other)
  Sender: FDA-Public Use
  Company Number: US-INTRA-CELLULAR THERAPIES, INC.-2024ICT00210

PATIENT
  Sex: Female

DRUGS (30)
  1. CAPLYTA [Suspect]
     Active Substance: LUMATEPERONE
     Indication: Bipolar disorder
     Dosage: 1 CAPSULE (42 MG), AT NIGHT
     Dates: end: 202304
  2. CAPLYTA [Suspect]
     Active Substance: LUMATEPERONE
     Dosage: 1 CAPSULE (42 MG), AT NIGHT
     Dates: start: 202306
  3. ATENOLOL [Concomitant]
     Active Substance: ATENOLOL
     Dosage: 1 TABLET (25 MG), IN THE MORNING
  4. CALCIUM [Concomitant]
     Active Substance: CALCIUM
     Dosage: 1040 MG, IN THE MORNING
  5. DOSTINEX [Concomitant]
     Active Substance: CABERGOLINE
     Dosage: 4 TABLETS (2 MG), MONDAY AND FRIDAY IN THE MORNING
  6. EFFEXOR XR [Concomitant]
     Active Substance: VENLAFAXINE HYDROCHLORIDE
     Dosage: 1 CAPSULE (150 MG), IN THE MORNING
  7. IRON [Concomitant]
     Active Substance: IRON
     Dosage: 2 GUMMIES (38 MG), IN THE MORNING
  8. SYNTHROID [Concomitant]
     Active Substance: LEVOTHYROXINE SODIUM
     Dosage: 1 TABLET (100 ?G), IN THE MORNING
  9. VITAMIN B12 [Concomitant]
     Active Substance: CYANOCOBALAMIN
     Dosage: 1 CAPSULE (1000 ?G), IN THE MORNING
  10. VITAMIN D3 [Concomitant]
     Active Substance: CHOLECALCIFEROL
     Dosage: 1 CAPSULE (25 ?G), IN THE MORNING
  11. .ALPHA.-TOCOPHEROL [Concomitant]
     Active Substance: .ALPHA.-TOCOPHEROL
     Dosage: 1 CAPSULE (450 MG), IN THE MORNING
  12. LAMICTAL [Concomitant]
     Active Substance: LAMOTRIGINE
     Dosage: 100 MG, IN THE MORNING
  13. LAMICTAL [Concomitant]
     Active Substance: LAMOTRIGINE
     Dosage: 1 TABLET (100 MG), AT NIGHT
  14. NEURONTIN [Concomitant]
     Active Substance: GABAPENTIN
     Dosage: 300 MG, IN THE MORNING
  15. NEURONTIN [Concomitant]
     Active Substance: GABAPENTIN
     Dosage: 300 MG, AT NIGHT
  16. MUCINEX [Concomitant]
     Active Substance: GUAIFENESIN
     Dosage: 1 DOSAGE FORM, IN THE MORNING
  17. MUCINEX [Concomitant]
     Active Substance: GUAIFENESIN
     Dosage: 1 DOSAGE FORM, AT NIGHT
  18. ZANAFLEX [Concomitant]
     Active Substance: TIZANIDINE HYDROCHLORIDE
     Dosage: 4 MG, IN THE MORNING
  19. ZANAFLEX [Concomitant]
     Active Substance: TIZANIDINE HYDROCHLORIDE
     Dosage: 4 MG, AT NIGHT
  20. COLACE [Concomitant]
     Active Substance: DOCUSATE SODIUM
     Dosage: 1 DOSAGE FORM, AT NIGHT
  21. EFFEXOR XR [Concomitant]
     Active Substance: VENLAFAXINE HYDROCHLORIDE
     Dosage: 1 CAPSULE (75 MG), AT NIGHT
  22. INGREZZA [Concomitant]
     Active Substance: VALBENAZINE
     Dosage: 1 CAPSULE (80 MG), AT NIGHT
  23. KLOR-CON M20 [Concomitant]
     Active Substance: POTASSIUM CHLORIDE
     Dosage: 1 TABLET (20 MEQ), AT NIGHT
  24. MAGNESIUM GLYCINATE [Concomitant]
     Active Substance: MAGNESIUM GLYCINATE
     Dosage: 100 MG, AT NIGHT
  25. SEROQUEL XR [Concomitant]
     Active Substance: QUETIAPINE FUMARATE
     Dosage: 1 TABLET (200 MG), AT NIGHT
  26. PEPCID [Concomitant]
     Active Substance: FAMOTIDINE
     Dosage: 1 TABLET (40 MG), AT NIGHT
  27. VISTARIL [Concomitant]
     Active Substance: HYDROXYZINE PAMOATE
  28. TYLENOL EXTRA STRENGTH [Concomitant]
     Active Substance: ACETAMINOPHEN
     Dosage: 2 DOSAGE FORM, 3X/DAY
  29. NORCO [Concomitant]
     Active Substance: ACETAMINOPHEN\HYDROCODONE BITARTRATE
     Dosage: 1 TABLET (7.5 MG), 3X/DAY
  30. UNSPECIFIED INGREDIENT [Concomitant]
     Active Substance: UNSPECIFIED INGREDIENT
     Dosage: EVERY 3 MONTHS
     Route: 008

REACTIONS (14)
  - Mania [Recovered/Resolved]
  - COVID-19 [Unknown]
  - Schizoaffective disorder bipolar type [Unknown]
  - Road traffic accident [Recovered/Resolved]
  - Ankle fracture [Recovered/Resolved]
  - Ligament sprain [Unknown]
  - Wound [Unknown]
  - Pelvic fracture [Unknown]
  - Rib fracture [Unknown]
  - Hypomania [Recovered/Resolved]
  - Confusional state [Recovered/Resolved]
  - Incoherent [Recovered/Resolved]
  - Product dose omission issue [Recovered/Resolved]
  - Thinking abnormal [Recovered/Resolved]

NARRATIVE: CASE EVENT DATE: 20220801
